FAERS Safety Report 9407909 (Version 3)
Quarter: 2014Q3

REPORT INFORMATION
  Report Type: Spontaneous
  Country: DE (occurrence: None)
  Receive Date: 20130426
  Receipt Date: 20140821
  Transmission Date: 20150326
  Serious: Yes (Hospitalization, Other)
  Sender: FDA-Public Use
  Company Number: 1303-316

PATIENT
  Age: 55 Year
  Sex: Male
  Weight: 73 kg

DRUGS (12)
  1. METHYCOBAL (MECOBALAMIN) [Concomitant]
  2. PROBIOTICS [Concomitant]
     Active Substance: PROBIOTICS NOS
  3. BRONUCK (BROMFENAC SODIUM) [Concomitant]
  4. AMLODIN [Suspect]
     Active Substance: AMLODIPINE BESYLATE
     Indication: HYPERTENSION
     Dosage: 2.5 MG, 1 IN 1 D, ORAL
     Route: 048
     Dates: start: 20120215
  5. ZYLORIC (ALLOPURINOL) [Concomitant]
     Active Substance: ALLOPURINOL
  6. LIVALO (PITAVASTATIN CALCIUM) [Concomitant]
  7. BIO THREE (BACTERIA NOS) [Concomitant]
  8. HERBAL PREPARATION (HERBAL EXTRACT NOS) [Concomitant]
  9. VEGF TRAP-EYE OR LASER TREATMENT (CODE NOT BROKEN) [Suspect]
     Active Substance: AFLIBERCEPT
     Indication: DIABETIC RETINAL OEDEMA
     Route: 031
     Dates: start: 20110830
  10. AMARYL [Suspect]
     Active Substance: GLIMEPIRIDE
     Indication: DIABETES MELLITUS
     Dosage: 0.5 MG, 2 IN 1 D, ORAL
     Route: 048
     Dates: start: 20110527
  11. HERBAL PREPARATION (HERBAL EXTRACT NOS) (GRANULES) [Concomitant]
  12. BLOPRESS (CANDESARTAN CILEXETIL) [Suspect]
     Active Substance: CANDESARTAN CILEXETIL
     Indication: HYPERTENSION
     Dosage: 8 MG, 1 IN 1 D, ORAL
     Route: 048
     Dates: start: 20120215

REACTIONS (6)
  - Decreased appetite [None]
  - Subdural haematoma [None]
  - Loss of consciousness [None]
  - Headache [None]
  - Dizziness [None]
  - Vomiting [None]

NARRATIVE: CASE EVENT DATE: 20130223
